FAERS Safety Report 9602434 (Version 4)
Quarter: 2014Q2

REPORT INFORMATION
  Report Type: Report from Study
  Country: US (occurrence: US)
  Receive Date: 20131007
  Receipt Date: 20140508
  Transmission Date: 20141212
  Serious: Yes (Hospitalization, Disabling)
  Sender: FDA-Public Use
  Company Number: US-SANOFI-AVENTIS-2013SA080351

PATIENT
  Age: 35 Year
  Sex: Female
  Weight: 88.45 kg

DRUGS (7)
  1. AUBAGIO [Suspect]
     Indication: MULTIPLE SCLEROSIS
     Route: 048
     Dates: start: 20130801, end: 20140301
  2. PAXIL [Suspect]
     Route: 065
  3. ZINC SULFATE [Concomitant]
     Route: 065
     Dates: start: 200309
  4. DDAVP [Concomitant]
     Indication: HYPOPHYSECTOMY
     Dosage: DOSE : 0.2 MG ONE AND HALF TWICE DAILY.
     Route: 065
     Dates: start: 200309
  5. SIMVASTATIN [Concomitant]
     Route: 065
     Dates: start: 200309
  6. SYNTHROID [Concomitant]
     Route: 065
     Dates: start: 201309
  7. PRENATAL VITAMINS [Concomitant]
     Route: 065
     Dates: start: 201309

REACTIONS (10)
  - Blood sodium decreased [Recovered/Resolved]
  - Monoplegia [Unknown]
  - Muscle twitching [Unknown]
  - Fatigue [Recovered/Resolved]
  - Dizziness [Recovered/Resolved]
  - Nausea [Recovered/Resolved]
  - Headache [Unknown]
  - Malaise [Unknown]
  - Asthenia [Unknown]
  - Drug ineffective [Unknown]
